FAERS Safety Report 6231435-2 (Version None)
Quarter: 2009Q2

REPORT INFORMATION
  Report Type: 
  Country: None (occurrence: None)
  Receive Date: 20090612
  Receipt Date: 20090612
  Transmission Date: 20091009
  Serious: Yes (Death, Hospitalization)
  Sender: FDA-Public Use
  Company Number: None

PATIENT
  Sex: Female

DRUGS (11)
  1. REVLIMID [Suspect]
     Dosage: 5MG DAILY ORALLY
     Route: 048
     Dates: start: 20080909, end: 20080928
  2. MAGNESIUM OXIDE [Concomitant]
  3. NAPROXEN [Concomitant]
  4. SENNOSIDES [Concomitant]
  5. CYANOCOBALAMIN [Concomitant]
  6. OMEPRAZOLE [Concomitant]
  7. MEDROL [Concomitant]
  8. M.V.I. [Concomitant]
  9. WARFARIN SODIUM [Concomitant]
  10. DOCUSATE [Concomitant]
  11. BISACODYL [Concomitant]

REACTIONS (13)
  - ACTIVATED PARTIAL THROMBOPLASTIN TIME PROLONGED [None]
  - BILIARY TRACT INFECTION [None]
  - CHOLESTASIS [None]
  - DELIRIUM [None]
  - DISORIENTATION [None]
  - DYSURIA [None]
  - HAEMATURIA [None]
  - HAEMOGLOBIN DECREASED [None]
  - HYPOTENSION [None]
  - INTERNATIONAL NORMALISED RATIO INCREASED [None]
  - ISCHAEMIC HEPATITIS [None]
  - NO THERAPEUTIC RESPONSE [None]
  - STENT OCCLUSION [None]
